FAERS Safety Report 12700856 (Version 2)
Quarter: 2016Q4

REPORT INFORMATION
  Report Type: Spontaneous
  Country: US (occurrence: US)
  Receive Date: 20160830
  Receipt Date: 20161026
  Transmission Date: 20170207
  Serious: No
  Sender: FDA-Public Use
  Company Number: US-LUNDBECK-DKLU2017934

PATIENT
  Sex: Male
  Weight: 68 kg

DRUGS (8)
  1. NORTHERA [Suspect]
     Active Substance: DROXIDOPA
     Dosage: 1800 MG, DAY 11-30; TITRATION SCHEDULE B COMPLETE
     Route: 065
  2. NORTHERA [Suspect]
     Active Substance: DROXIDOPA
     Indication: PRODUCT USED FOR UNKNOWN INDICATION
     Dosage: 300 MG, DAY 1-2
     Route: 065
     Dates: start: 20160722
  3. NORTHERA [Suspect]
     Active Substance: DROXIDOPA
     Dosage: 1800 MG, DAY 11-30; TITRATION SCHEDULE B COMPLETE
     Route: 065
  4. NORTHERA [Suspect]
     Active Substance: DROXIDOPA
     Dosage: 1500 MG, DAY 9-10
     Route: 065
  5. NORTHERA [Suspect]
     Active Substance: DROXIDOPA
     Dosage: 600 MG, DAY 3-4
     Route: 065
  6. NORTHERA [Suspect]
     Active Substance: DROXIDOPA
     Dosage: 1800 MG, DAY 11-30; TITRATION SCHEDULE B COMPLETE
     Route: 065
  7. NORTHERA [Suspect]
     Active Substance: DROXIDOPA
     Dosage: 900 MG, DAY 5-6
     Route: 065
  8. NORTHERA [Suspect]
     Active Substance: DROXIDOPA
     Dosage: 1200 MG, DAY 7-8
     Route: 065

REACTIONS (4)
  - Joint swelling [Unknown]
  - Peripheral swelling [Unknown]
  - Weight increased [Unknown]
  - Blood pressure increased [Recovered/Resolved]
